FAERS Safety Report 18947384 (Version 1)
Quarter: 2021Q1

REPORT INFORMATION
  Report Type: Spontaneous
  Country: IT (occurrence: IT)
  Receive Date: 20210226
  Receipt Date: 20210226
  Transmission Date: 20210420
  Serious: Yes (Other)
  Sender: FDA-Public Use
  Company Number: IT-ALLERGAN-2107838US

PATIENT
  Sex: Male

DRUGS (2)
  1. ESCITALOPRAM OXALATE UNK [Suspect]
     Active Substance: ESCITALOPRAM OXALATE
     Indication: NERVOUSNESS
     Dosage: 140 MG, SINGLE
     Route: 048
     Dates: start: 20201202, end: 20201202
  2. DELORAZEPAM [Suspect]
     Active Substance: DELORAZEPAM
     Indication: NERVOUSNESS
     Route: 048
     Dates: start: 20201202, end: 20201202

REACTIONS (5)
  - Bradyphrenia [Recovering/Resolving]
  - Bradykinesia [Recovering/Resolving]
  - Somnolence [Recovering/Resolving]
  - Drug abuse [Recovering/Resolving]
  - Overdose [Unknown]

NARRATIVE: CASE EVENT DATE: 20201202
